FAERS Safety Report 5389850-5 (Version None)
Quarter: 2007Q3

REPORT INFORMATION
  Report Type: 
  Country: None (occurrence: None)
  Receive Date: 20070718
  Receipt Date: 20070713
  Transmission Date: 20080115
  Serious: Yes (Death, Other)
  Sender: FDA-Public Use
  Company Number: PHBS2007BR11908

PATIENT
  Sex: Male
  Weight: 76 kg

DRUGS (3)
  1. GLEEVEC [Suspect]
     Dosage: 400 MG/D
     Route: 048
  2. SIMVASTATIN [Concomitant]
     Indication: CARDIAC DISORDER
     Route: 065
  3. VASOPRIL [Concomitant]
     Indication: CARDIAC DISORDER
     Route: 065

REACTIONS (1)
  - DEATH [None]
